FAERS Safety Report 10889996 (Version 1)
Quarter: 2015Q1

REPORT INFORMATION
  Report Type: Spontaneous
  Country: US (occurrence: US)
  Receive Date: 20150305
  Receipt Date: 20150305
  Transmission Date: 20150721
  Serious: No
  Sender: FDA-Public Use
  Company Number: US-BAYER-2015-033309

PATIENT
  Age: 38 Year
  Sex: Female

DRUGS (1)
  1. GADAVIST [Suspect]
     Active Substance: GADOBUTROL
     Indication: IMAGING PROCEDURE
     Dosage: 7.5 UNK, ONCE
     Route: 042
     Dates: start: 20150303, end: 20150303

REACTIONS (1)
  - Urticaria [None]

NARRATIVE: CASE EVENT DATE: 20150303
